FAERS Safety Report 12150925 (Version 2)
Quarter: 2016Q1

REPORT INFORMATION
  Report Type: Spontaneous
  Country: AE (occurrence: AE)
  Receive Date: 20160304
  Receipt Date: 20160310
  Transmission Date: 20160526
  Serious: Yes (Hospitalization, Other)
  Sender: FDA-Public Use
  Company Number: AE-SA-2016SA038304

PATIENT
  Age: 40 Year
  Sex: Female

DRUGS (2)
  1. LEMTRADA [Suspect]
     Active Substance: ALEMTUZUMAB
     Route: 042
     Dates: start: 20160202, end: 20160206
  2. ACYCLOVIR. [Concomitant]
     Active Substance: ACYCLOVIR
     Dates: start: 20160207

REACTIONS (7)
  - Pyrexia [Unknown]
  - Diarrhoea [Recovering/Resolving]
  - T-cell depletion [Unknown]
  - Dehydration [Recovered/Resolved]
  - Vomiting [Recovering/Resolving]
  - B-lymphocyte count decreased [Unknown]
  - Lymphopenia [Unknown]

NARRATIVE: CASE EVENT DATE: 201602
